FAERS Safety Report 5482338-2 (Version None)
Quarter: 2007Q4

REPORT INFORMATION
  Report Type: 
  Country: None (occurrence: None)
  Receive Date: 20071011
  Receipt Date: 20071003
  Transmission Date: 20080405
  Serious: Yes (Other)
  Sender: FDA-Public Use
  Company Number: GB-AVENTIS-200718601GDDC

PATIENT
  Age: 69 Year
  Sex: Female
  Weight: 90 kg

DRUGS (9)
  1. LANTUS [Suspect]
     Route: 058
     Dates: start: 20050101
  2. SIMVASTATIN [Concomitant]
  3. METFORMIN HCL [Concomitant]
     Route: 048
  4. FLUOXETINE [Concomitant]
     Indication: DEPRESSION
     Route: 048
  5. OMEPRAZOLE [Concomitant]
     Route: 048
  6. PROPRANOLOL [Concomitant]
     Route: 048
  7. ASPIRIN [Concomitant]
     Route: 048
  8. DIPYRIDAMOLE [Concomitant]
     Route: 048
  9. TELMISARTAN [Concomitant]
     Route: 048

REACTIONS (5)
  - HYPOGLYCAEMIA [None]
  - INJECTION SITE BRUISING [None]
  - MEMORY IMPAIRMENT [None]
  - SPEECH DISORDER [None]
  - TRANSIENT ISCHAEMIC ATTACK [None]
